FAERS Safety Report 14179410 (Version 1)
Quarter: 2017Q4

REPORT INFORMATION
  Report Type: Spontaneous
  Country: ZA (occurrence: ZA)
  Receive Date: 20171110
  Receipt Date: 20171110
  Transmission Date: 20180321
  Serious: Yes (Hospitalization)
  Sender: FDA-Public Use
  Company Number: ZA-TEVA-822371ISR

PATIENT
  Age: 34 Year
  Sex: Male
  Weight: 69.3 kg

DRUGS (15)
  1. LEVOFLOXACIN. [Suspect]
     Active Substance: LEVOFLOXACIN
     Indication: TUBERCULOSIS
     Dosage: 1 GRAM DAILY;
     Route: 048
     Dates: start: 20170404
  2. ISONIAZID. [Suspect]
     Active Substance: ISONIAZID
     Dosage: 300MH QD
     Dates: start: 20170404
  3. TERIZIDONE [Suspect]
     Active Substance: TERIZIDONE
     Dates: start: 20160803
  4. DELAMANID [Suspect]
     Active Substance: DELAMANID
     Indication: TUBERCULOSIS
     Dosage: 200 MILLIGRAM DAILY;
     Route: 048
     Dates: start: 20170421
  5. ETHAMBUTOL [Suspect]
     Active Substance: ETHAMBUTOL HYDROCHLORIDE
     Indication: TUBERCULOSIS
     Dates: start: 20160718, end: 20160803
  6. PYRAZINAMIDE. [Suspect]
     Active Substance: PYRAZINAMIDE
     Indication: TUBERCULOSIS
     Dosage: 1.75 GRAM DAILY;
     Route: 048
     Dates: start: 20170421
  7. BEDAQUILINE [Suspect]
     Active Substance: BEDAQUILINE
     Dosage: 200 MG QOD
     Route: 065
     Dates: start: 20170421
  8. ETHAMBUTOL [Suspect]
     Active Substance: ETHAMBUTOL HYDROCHLORIDE
     Dates: start: 20160803
  9. PREDNISONE. [Concomitant]
     Active Substance: PREDNISONE
     Dates: start: 20170421
  10. CLOFAZIMINE [Suspect]
     Active Substance: CLOFAZIMINE
     Indication: TUBERCULOSIS
     Dosage: 100 MILLIGRAM DAILY;
     Route: 048
  11. ETHIONAMIDE [Concomitant]
     Active Substance: ETHIONAMIDE
     Dates: start: 20160718
  12. EPILIM [Concomitant]
     Active Substance: VALPROATE SODIUM
     Dates: start: 20170421
  13. ISONIAZID. [Suspect]
     Active Substance: ISONIAZID
     Indication: TUBERCULOSIS
     Dates: start: 20160718, end: 20160803
  14. TERIZIDONE [Suspect]
     Active Substance: TERIZIDONE
     Indication: TUBERCULOSIS
     Dates: start: 20160718, end: 20160803
  15. BEDAQUILINE [Suspect]
     Active Substance: BEDAQUILINE
     Indication: TUBERCULOSIS
     Dosage: 200 MG QOD
     Route: 065
     Dates: start: 20160802, end: 20170203

REACTIONS (4)
  - Seizure [Recovered/Resolved]
  - Seizure [Unknown]
  - Confusional state [Unknown]
  - Central nervous system lymphoma [Unknown]

NARRATIVE: CASE EVENT DATE: 20170711
